FAERS Safety Report 5299337-6 (Version None)
Quarter: 2007Q2

REPORT INFORMATION
  Report Type: 
  Country: None (occurrence: None)
  Receive Date: 20070411
  Receipt Date: 20070411
  Transmission Date: 20071010
  Serious: Yes (Hospitalization)
  Sender: FDA-Public Use
  Company Number: None

PATIENT
  Age: 80 Year
  Sex: Male
  Weight: 73.4827 kg

DRUGS (8)
  1. AMOXICILLIN/CLAVULANATE (AUGMENTIN) [Suspect]
     Indication: INFECTION
     Dosage: PO
     Route: 048
  2. METOPROLOL SUCCINATE [Concomitant]
  3. FUROSEMIDE [Concomitant]
  4. SPIRONOLACTONE [Concomitant]
  5. LEVOTHYROXINE SODIUM [Concomitant]
  6. POTASSIUM CHLORIDE [Concomitant]
  7. ASPIRIN [Concomitant]
  8. MEGESTROL ACETATE [Concomitant]

REACTIONS (3)
  - HERNIA REPAIR [None]
  - RASH MACULO-PAPULAR [None]
  - THROMBOCYTOPENIA [None]
